FAERS Safety Report 8547679-0 (Version None)
Quarter: 2012Q3

REPORT INFORMATION
  Report Type: 
  Country: None (occurrence: None)
  Receive Date: 20120727
  Receipt Date: 20111121
  Transmission Date: 20120928
  Serious: Yes (Other)
  Sender: FDA-Public Use
  Company Number: US-ASTRAZENECA-2011SE70832

PATIENT
  Age: 66 Year
  Weight: 58.1 kg

DRUGS (4)
  1. DEPAKOTE R [Concomitant]
  2. SEROQUEL XR [Suspect]
     Indication: BIPOLAR DISORDER
     Route: 048
  3. KLONOPIN [Concomitant]
  4. LEXAPRO [Concomitant]

REACTIONS (1)
  - CATARACT [None]
